FAERS Safety Report 24045383 (Version 1)
Quarter: 2024Q3

REPORT INFORMATION
  Report Type: Spontaneous
  Country: US (occurrence: US)
  Receive Date: 20240703
  Receipt Date: 20240703
  Transmission Date: 20241017
  Serious: Yes (Other)
  Sender: TEVA
  Company Number: US-TEVA-VS-3215525

PATIENT
  Sex: Male

DRUGS (6)
  1. GLYBURIDE [Suspect]
     Active Substance: GLYBURIDE
     Indication: Blood glucose increased
     Route: 065
  2. ALEVE [Concomitant]
     Active Substance: NAPROXEN SODIUM
  3. MONTELUKAST [Suspect]
     Active Substance: MONTELUKAST SODIUM
     Indication: Product used for unknown indication
     Dosage: UNI
     Route: 065
     Dates: start: 2024
  4. METFORMIN [Concomitant]
     Active Substance: METFORMIN HYDROCHLORIDE
     Indication: Blood glucose increased
     Dosage: MANUFACTURER: GRANULES
  5. METFORMIN [Concomitant]
     Active Substance: METFORMIN HYDROCHLORIDE
     Indication: Blood glucose increased
     Dosage: MANUFACTURER: GRANULES
  6. METHOTREXATE [Concomitant]
     Active Substance: METHOTREXATE
     Indication: Autoimmune disorder
     Dosage: MANUFACTURER: ZYDUS

REACTIONS (1)
  - Hallucination, visual [Unknown]

NARRATIVE: CASE EVENT DATE: 20240101
